FAERS Safety Report 6921860-6 (Version None)
Quarter: 2010Q3

REPORT INFORMATION
  Report Type: 
  Country: None (occurrence: None)
  Receive Date: 20100812
  Receipt Date: 20100809
  Transmission Date: 20110219
  Serious: Yes (Hospitalization)
  Sender: FDA-Public Use
  Company Number: US-BRISTOL-MYERS SQUIBB COMPANY-15232622

PATIENT
  Age: 52 Year
  Sex: Male

DRUGS (8)
  1. CARBOPLATIN [Suspect]
     Indication: NON-SMALL CELL LUNG CANCER
     Dosage: RECENT DOSE ON 15JUL10 (585 MG).
     Dates: start: 20100518
  2. ABRAXANE [Suspect]
     Indication: NON-SMALL CELL LUNG CANCER
     Dosage: RECENT DOSE ON 15JUL10 (504 MG);INTERRUPTED ON 05AUG2010.
     Dates: start: 20100518
  3. OXYCODONE HCL [Concomitant]
     Dosage: EVERY 4 HOURS AS NEEDED.
  4. AMLODIPINE [Concomitant]
  5. AMITRIPTYLINE HYDROCHLORIDE [Concomitant]
     Dosage: EVERY NIGHT AT BEDTIME.
  6. FOLIC ACID [Concomitant]
  7. NEURONTIN [Concomitant]
  8. THIAMINE HCL [Concomitant]

REACTIONS (2)
  - DEHYDRATION [None]
  - HYPOTENSION [None]
